FAERS Safety Report 17545473 (Version 1)
Quarter: 2020Q1

REPORT INFORMATION
  Report Type: Spontaneous
  Country: DE (occurrence: DE)
  Receive Date: 20200316
  Receipt Date: 20200316
  Transmission Date: 20200409
  Serious: Yes (Other)
  Sender: FDA-Public Use
  Company Number: DE-PFIZER INC-2020073094

PATIENT
  Age: 76 Year
  Sex: Female

DRUGS (1)
  1. XELJANZ [Suspect]
     Active Substance: TOFACITINIB CITRATE
     Indication: COLITIS ULCERATIVE
     Dosage: 10 MG, 2X/DAY

REACTIONS (11)
  - Paraesthesia [Recovering/Resolving]
  - Headache [Unknown]
  - Therapeutic response unexpected [Unknown]
  - Oedema peripheral [Unknown]
  - Increased appetite [Unknown]
  - Peripheral vascular disorder [Unknown]
  - Arrhythmia [Unknown]
  - Depression [Unknown]
  - Cardiac flutter [Unknown]
  - Hypoaesthesia [Recovering/Resolving]
  - Pre-existing condition improved [Unknown]
